FAERS Safety Report 5636703-0 (Version None)
Quarter: 2008Q1

REPORT INFORMATION
  Report Type: 
  Country: None (occurrence: None)
  Receive Date: 20080219
  Receipt Date: 20080219
  Transmission Date: 20080703
  Serious: Yes (Death, Life-Threatening, Hospitalization)
  Sender: FDA-Public Use
  Company Number: None

PATIENT
  Age: 60 Year
  Sex: Male

DRUGS (5)
  1. WARFARIN SODIUM [Suspect]
     Dosage: DAILY PO
     Route: 048
  2. AGGRENOX [Suspect]
     Dosage: 1 CAPSULE BID PO
     Route: 048
  3. NORTRIPTYLINE HCL [Concomitant]
  4. PAXIL [Concomitant]
  5. LOVASTATIN [Concomitant]

REACTIONS (4)
  - COAGULOPATHY [None]
  - DEPRESSED LEVEL OF CONSCIOUSNESS [None]
  - HAEMORRHAGE INTRACRANIAL [None]
  - UNEVALUABLE EVENT [None]
